FAERS Safety Report 14695507 (Version 1)
Quarter: 2018Q1

REPORT INFORMATION
  Report Type: Spontaneous
  Country: US (occurrence: US)
  Receive Date: 20180327
  Receipt Date: 20180327
  Transmission Date: 20180509
  Serious: No
  Sender: FDA-Public Use
  Company Number: None

PATIENT
  Age: 53 Year
  Sex: Female

DRUGS (1)
  1. AMPYRA [Suspect]
     Active Substance: DALFAMPRIDINE
     Indication: MULTIPLE SCLEROSIS
     Dosage: 10MG QDX7D THEN Q12H ORAL
     Route: 048
     Dates: start: 20180312, end: 20180322

REACTIONS (6)
  - Dizziness [None]
  - Asthenia [None]
  - Fatigue [None]
  - Gait disturbance [None]
  - Somnolence [None]
  - Therapy non-responder [None]

NARRATIVE: CASE EVENT DATE: 20180312
